FAERS Safety Report 4443508-5 (Version None)
Quarter: 2004Q3

REPORT INFORMATION
  Report Type: 
  Country: None (occurrence: None)
  Receive Date: 20040903
  Receipt Date: 20040903
  Transmission Date: 20050211
  Serious: Yes (Other)
  Sender: FDA-Public Use
  Company Number: None

PATIENT
  Sex: Female
  Weight: 83.9154 kg

DRUGS (3)
  1. PAXIL [Suspect]
     Indication: ANXIETY
     Dosage: 40 MG DAY ORAL
     Route: 048
     Dates: start: 20010223, end: 20040630
  2. PAXIL [Suspect]
     Indication: BEREAVEMENT REACTION
     Dosage: 40 MG DAY ORAL
     Route: 048
     Dates: start: 20010223, end: 20040630
  3. PAXIL [Suspect]
     Indication: DEPRESSION
     Dosage: 40 MG DAY ORAL
     Route: 048
     Dates: start: 20010223, end: 20040630

REACTIONS (8)
  - DISTURBANCE IN ATTENTION [None]
  - DRUG WITHDRAWAL SYNDROME [None]
  - FATIGUE [None]
  - HYPERSOMNIA [None]
  - LOGORRHOEA [None]
  - MANIA [None]
  - OBSESSIVE-COMPULSIVE DISORDER [None]
  - WEIGHT INCREASED [None]
